FAERS Safety Report 11016622 (Version 2)
Quarter: 2015Q2

REPORT INFORMATION
  Report Type: Spontaneous
  Country: US (occurrence: US)
  Receive Date: 20150412
  Receipt Date: 20150525
  Transmission Date: 20150821
  Serious: Yes (Other)
  Sender: FDA-Public Use
  Company Number: US-JNJFOC-20121111241

PATIENT
  Age: 4 Decade
  Sex: Female

DRUGS (1)
  1. MICRONOR [Suspect]
     Active Substance: NORETHINDRONE
     Indication: CONTRACEPTION
     Route: 048
     Dates: start: 201110, end: 2011

REACTIONS (4)
  - Migraine [Unknown]
  - Exposure during pregnancy [Recovered/Resolved]
  - Headache [Unknown]
  - Pregnancy on oral contraceptive [Recovered/Resolved]

NARRATIVE: CASE EVENT DATE: 2011
